FAERS Safety Report 25524942 (Version 2)
Quarter: 2025Q3

REPORT INFORMATION
  Report Type: Spontaneous
  Country: US (occurrence: US)
  Receive Date: 20250707
  Receipt Date: 20250717
  Transmission Date: 20251020
  Serious: Yes (Hospitalization, Other)
  Sender: BAYER HEALTHCARE PHARMACEUTICALS INC.
  Company Number: US-BAYER-2025A088246

PATIENT
  Age: 50 Year
  Sex: Female
  Weight: 90.703 kg

DRUGS (1)
  1. GADAVIST [Suspect]
     Active Substance: GADOBUTROL
     Indication: Magnetic resonance imaging
     Route: 042
     Dates: start: 20250528, end: 20250528

REACTIONS (7)
  - Pruritus [None]
  - Blood pressure increased [None]
  - Headache [None]
  - Hyperhidrosis [None]
  - Vomiting [None]
  - Chest pain [None]
  - Anaphylactic reaction [None]

NARRATIVE: CASE EVENT DATE: 20250528
